FAERS Safety Report 7762243-9 (Version None)
Quarter: 2011Q3

REPORT INFORMATION
  Report Type: 
  Country: None (occurrence: None)
  Receive Date: 20110920
  Receipt Date: 20110907
  Transmission Date: 20111222
  Serious: No
  Sender: FDA-Public Use
  Company Number: US-B.I. PHARMACEUTICALS,INC./RIDGEFIELD-2011-BP-21628BP

PATIENT
  Age: 65 Year
  Sex: Female

DRUGS (2)
  1. PRADAXA [Suspect]
     Indication: ATRIAL FIBRILLATION
     Dosage: 300 MG
     Route: 048
     Dates: start: 20110801
  2. MULTAQ [Suspect]
     Indication: ATRIAL FIBRILLATION
     Dates: start: 20110801, end: 20110801

REACTIONS (3)
  - DIARRHOEA [None]
  - PRURITUS GENERALISED [None]
  - DIZZINESS [None]
